FAERS Safety Report 4860407-5 (Version None)
Quarter: 2005Q4

REPORT INFORMATION
  Report Type: 
  Country: None (occurrence: None)
  Receive Date: 20051219
  Receipt Date: 20051017
  Transmission Date: 20060501
  Serious: Yes (Hospitalization)
  Sender: FDA-Public Use
  Company Number: 200513386FR

PATIENT
  Age: 60 Year
  Sex: Male

DRUGS (4)
  1. FLAGYL [Suspect]
     Indication: POSTOPERATIVE INFECTION
     Route: 042
     Dates: start: 20050420, end: 20050425
  2. AMIKLIN [Suspect]
     Indication: POSTOPERATIVE INFECTION
     Route: 042
     Dates: start: 20050420, end: 20050425
  3. CLAVENTIN [Suspect]
     Indication: POSTOPERATIVE INFECTION
     Route: 042
     Dates: start: 20050420, end: 20050425
  4. BEFIZAL [Concomitant]

REACTIONS (2)
  - PRURITUS [None]
  - PURPURA [None]
